FAERS Safety Report 4387049-2 (Version None)
Quarter: 2004Q2

REPORT INFORMATION
  Report Type: 
  Country: None (occurrence: None)
  Receive Date: 20040625
  Receipt Date: 20040617
  Transmission Date: 20050107
  Serious: Yes (Hospitalization)
  Sender: FDA-Public Use
  Company Number: 2004-06-1118

PATIENT
  Sex: Male

DRUGS (2)
  1. AERIUS               (DESLORATADINE) [Suspect]
     Indication: SEASONAL ALLERGY
     Dosage: 5 MG QD ORAL
     Route: 048
  2. MIZOLASTINE [Suspect]
     Dates: end: 20040604

REACTIONS (2)
  - ANGIONEUROTIC OEDEMA [None]
  - FEELING ABNORMAL [None]
